FAERS Safety Report 12357295 (Version 1)
Quarter: 2016Q2

REPORT INFORMATION
  Report Type: Report from Study
  Country: SD (occurrence: SD)
  Receive Date: 20160511
  Receipt Date: 20160511
  Transmission Date: 20160815
  Serious: Yes (Death)
  Sender: FDA-Public Use
  Company Number: PHHY2016SD064836

PATIENT
  Age: 66 Year
  Sex: Male

DRUGS (2)
  1. GLIVEC [Suspect]
     Active Substance: IMATINIB MESYLATE
     Indication: MYELODYSPLASTIC SYNDROME
     Dosage: 400 MG, UNK
     Route: 065
  2. GLIVEC [Suspect]
     Active Substance: IMATINIB MESYLATE
     Indication: MYELOPROLIFERATIVE NEOPLASM

REACTIONS (1)
  - Death [Fatal]

NARRATIVE: CASE EVENT DATE: 20160403
